FAERS Safety Report 9002579 (Version 4)
Quarter: 2014Q2

REPORT INFORMATION
  Report Type: Report from Study
  Country: FR (occurrence: FR)
  Receive Date: 20130107
  Receipt Date: 20140414
  Transmission Date: 20141212
  Serious: Yes (Hospitalization, Other)
  Sender: FDA-Public Use
  Company Number: PHHY2012FR122486

PATIENT
  Age: 72 Year
  Sex: Female
  Weight: 58 kg

DRUGS (10)
  1. ACLASTA/ZOLEDRONATE [Suspect]
     Indication: OSTEOPOROTIC FRACTURE
     Dosage: UNK
     Route: 042
     Dates: start: 201104
  2. ACLASTA/ZOLEDRONATE [Suspect]
     Dosage: UNK
     Route: 042
     Dates: start: 20120503
  3. ALTIZIDE [Concomitant]
     Indication: HYPERTENSION
     Dosage: 0.5 DF, QD
     Dates: start: 2000
  4. SPIRONOLACTONE [Concomitant]
     Dates: start: 2000, end: 2012
  5. FENOFIBRATE [Concomitant]
     Dates: start: 2000, end: 2012
  6. UVEDOSE [Concomitant]
     Dates: start: 2011, end: 2012
  7. PANTOPRAZOLE [Concomitant]
     Indication: GASTROOESOPHAGEAL REFLUX DISEASE
     Dosage: FOR 6 YEARS, QD
  8. PANTOPRAZOLE [Concomitant]
     Dosage: AS A TREATMENT DRUG FOR GOITRE
     Dates: start: 2012
  9. PRAVASTATINE [Concomitant]
     Indication: HYPERCHOLESTEROLAEMIA
     Dates: start: 201209
  10. PRAVASTATINE [Concomitant]
     Dosage: AS A TREATMENT DRUG FOR GOITRE
     Dates: start: 2012

REACTIONS (2)
  - Goitre [Recovered/Resolved]
  - Fall [Unknown]
